FAERS Safety Report 11294582 (Version 1)
Quarter: 2015Q3

REPORT INFORMATION
  Report Type: Spontaneous
  Country: IT (occurrence: None)
  Receive Date: 20150721
  Receipt Date: 20150721
  Transmission Date: 20151125
  Serious: Yes (Life-Threatening)
  Sender: FDA-Public Use
  Company Number: IT-H14001-15-01340

PATIENT
  Age: 0 Day
  Sex: Female

DRUGS (3)
  1. PERINDOPRIL ERBUMINE. [Concomitant]
     Active Substance: PERINDOPRIL ERBUMINE
  2. AMIODARONE HIKMA (AMIODARONE) (50 MILLIGRAM/MILLILITERS, INJECTION) (AMIODARONE) [Suspect]
     Active Substance: AMIODARONE
     Indication: VENTRICULAR TACHYCARDIA
     Dosage: 300 MG,1 IN 1 TOTAL
     Route: 042
  3. CARVEDILOL. [Concomitant]
     Active Substance: CARVEDILOL

REACTIONS (5)
  - Dermatitis allergic [None]
  - Hypotension [None]
  - Infantile vomiting [None]
  - Nausea [None]
  - Rash neonatal [None]

NARRATIVE: CASE EVENT DATE: 20150706
